FAERS Safety Report 16925954 (Version 1)
Quarter: 2019Q4

REPORT INFORMATION
  Report Type: Spontaneous
  Country: NL (occurrence: FR)
  Receive Date: 20191016
  Receipt Date: 20191016
  Transmission Date: 20200122
  Serious: Yes (Life-Threatening)
  Sender: FDA-Public Use
  Company Number: FR-FRESENIUS KABI-FK201911204

PATIENT
  Age: 32 Year
  Sex: Male
  Weight: 68 kg

DRUGS (4)
  1. PROPOFOL (MANUFACTURER UNKNOWN) [Suspect]
     Active Substance: PROPOFOL
     Indication: ANAESTHESIA
     Route: 042
     Dates: start: 20190901, end: 20190901
  2. KETAMINE [Suspect]
     Active Substance: KETAMINE
     Indication: ANAESTHESIA
     Route: 042
     Dates: start: 20190901, end: 20190901
  3. SUFENTANIL [Concomitant]
     Active Substance: SUFENTANIL
     Indication: GAIT DISTURBANCE
     Route: 042
     Dates: start: 20190901, end: 20190901
  4. SUXAMETHONIUM IODIDE [Suspect]
     Active Substance: SUCCINYLCHOLINE IODIDE
     Indication: ANAESTHESIA
     Route: 042
     Dates: start: 20190901, end: 20190901

REACTIONS (1)
  - Anaphylactic shock [Recovered/Resolved]

NARRATIVE: CASE EVENT DATE: 20190901
